FAERS Safety Report 5355463-4 (Version None)
Quarter: 2007Q2

REPORT INFORMATION
  Report Type: 
  Country: None (occurrence: None)
  Receive Date: 20070611
  Receipt Date: 20070611
  Transmission Date: 20071010
  Serious: Yes (Death)
  Sender: FDA-Public Use
  Company Number: None

PATIENT
  Sex: Male
  Weight: 86.1834 kg

DRUGS (3)
  1. GEMZAR [Suspect]
     Indication: PANCREATIC CARCINOMA
     Dates: start: 20060101, end: 20061001
  2. PROCRIT [Concomitant]
  3. NEUPOGEN [Concomitant]

REACTIONS (10)
  - ABDOMINAL PAIN [None]
  - ANASTOMOTIC COMPLICATION [None]
  - ASTHENIA [None]
  - JAUNDICE [None]
  - PANCREATIC CARCINOMA [None]
  - PERITONITIS [None]
  - SECRETION DISCHARGE [None]
  - SHOCK [None]
  - SKIN NECROSIS [None]
  - VASCULITIS [None]
